FAERS Safety Report 6473561-9 (Version None)
Quarter: 2009Q4

REPORT INFORMATION
  Report Type: 
  Country: None (occurrence: None)
  Receive Date: 20091204
  Receipt Date: 20090119
  Transmission Date: 20100525
  Serious: Yes (Other)
  Sender: FDA-Public Use
  Company Number: US-ELI_LILLY_AND_COMPANY-US200812003136

PATIENT
  Weight: 2.268 kg

DRUGS (6)
  1. CYMBALTA [Suspect]
     Indication: BIPOLAR DISORDER
     Dosage: 60 MG, EACH MORNING
     Route: 064
     Dates: start: 20070606, end: 20080101
  2. CYMBALTA [Suspect]
     Dosage: 30 MG, QOD
     Route: 064
     Dates: start: 20080101, end: 20080101
  3. CYMBALTA [Suspect]
     Dosage: 60 MG, UNK
     Route: 064
     Dates: start: 20080101, end: 20081001
  4. LAMICTAL [Concomitant]
     Indication: BIPOLAR DISORDER
     Dosage: 150 MG, EACH MORNING
     Route: 064
     Dates: start: 20080101
  5. LAMICTAL [Concomitant]
     Dosage: 200 MG, EACH EVENING
     Route: 064
     Dates: end: 20080101
  6. PRENATAL VITAMINS                  /01549301/ [Concomitant]
     Route: 064

REACTIONS (3)
  - BACTERIAL INFECTION [None]
  - DRUG EXPOSURE DURING PREGNANCY [None]
  - PREMATURE BABY [None]
